FAERS Safety Report 5311761-1 (Version None)
Quarter: 2007Q2

REPORT INFORMATION
  Report Type: 
  Country: None (occurrence: None)
  Receive Date: 20070430
  Receipt Date: 20060309
  Transmission Date: 20071010
  Serious: No
  Sender: FDA-Public Use
  Company Number: 2006UW04068

PATIENT
  Age: 49 Year
  Sex: Male

DRUGS (5)
  1. NEXIUM [Suspect]
     Indication: GASTROOESOPHAGEAL REFLUX DISEASE
     Route: 048
  2. ALLOPURINOL [Concomitant]
  3. ASMANEX TWISTHALER [Concomitant]
  4. ALBUTEROL [Concomitant]
  5. ADVAIR DISKUS 100/50 [Concomitant]

REACTIONS (5)
  - ASTHMA [None]
  - DYSPNOEA [None]
  - HICCUPS [None]
  - SINUSITIS [None]
  - WEIGHT INCREASED [None]
